FAERS Safety Report 5731125-6 (Version None)
Quarter: 2008Q2

REPORT INFORMATION
  Report Type: 
  Country: None (occurrence: None)
  Receive Date: 20080505
  Receipt Date: 20080421
  Transmission Date: 20081010
  Serious: Yes (Hospitalization)
  Sender: FDA-Public Use
  Company Number: 2006BI000743

PATIENT
  Age: 42 Year
  Sex: Female

DRUGS (1)
  1. AVONEX [Suspect]
     Indication: MULTIPLE SCLEROSIS
     Dosage: 30 UG;QW;IM
     Route: 030
     Dates: start: 20030429

REACTIONS (5)
  - ENDOMETRIOSIS [None]
  - GASTROINTESTINAL DISORDER [None]
  - KIDNEY INFECTION [None]
  - UTERINE LEIOMYOMA [None]
  - VOMITING [None]
